FAERS Safety Report 15668909 (Version 2)
Quarter: 2018Q4

REPORT INFORMATION
  Report Type: Report from Study
  Country: US (occurrence: US)
  Receive Date: 20181129
  Receipt Date: 20181208
  Transmission Date: 20190205
  Serious: Yes (Other)
  Sender: FDA-Public Use
  Company Number: US-AMGEN-USASL2018145197

PATIENT
  Age: 59 Year
  Sex: Female

DRUGS (6)
  1. XANAX [Concomitant]
     Active Substance: ALPRAZOLAM
     Dosage: 0.25 UNK, UNK
  2. LEVOTHYROXINE. [Concomitant]
     Active Substance: LEVOTHYROXINE
     Dosage: 50 MU, UNK
  3. ENBREL [Suspect]
     Active Substance: ETANERCEPT
     Indication: RHEUMATOID ARTHRITIS
     Dosage: 50 MG, QWK
     Route: 065
     Dates: start: 20180917
  4. ENBREL [Suspect]
     Active Substance: ETANERCEPT
     Dosage: 50 MG, QWK
     Route: 065
  5. PROTONIX [Concomitant]
     Active Substance: PANTOPRAZOLE SODIUM
     Dosage: UNK
  6. XANAX [Concomitant]
     Active Substance: ALPRAZOLAM
     Dosage: 0.5 UNK, UNK

REACTIONS (14)
  - Rheumatoid arthritis [Unknown]
  - Contusion [Unknown]
  - Skin atrophy [Unknown]
  - Vision blurred [Recovered/Resolved]
  - Panic attack [Unknown]
  - Injection site urticaria [Unknown]
  - Incorrect dose administered by device [Unknown]
  - Nervousness [Unknown]
  - Skin fissures [Unknown]
  - Feeling abnormal [Not Recovered/Not Resolved]
  - Disorientation [Unknown]
  - Hyperhidrosis [Unknown]
  - Injection site pain [Unknown]
  - Bone disorder [Unknown]

NARRATIVE: CASE EVENT DATE: 2018
